FAERS Safety Report 8603701-4 (Version None)
Quarter: 2012Q3

REPORT INFORMATION
  Report Type: 
  Country: None (occurrence: None)
  Receive Date: 20120817
  Receipt Date: 20120808
  Transmission Date: 20120928
  Serious: Yes (Other)
  Sender: FDA-Public Use
  Company Number: US-ASTRAZENECA-2012SE56216

PATIENT
  Age: 61 Year
  Sex: Female

DRUGS (1)
  1. SEROQUEL XR [Suspect]
     Route: 048

REACTIONS (5)
  - POST-TRAUMATIC STRESS DISORDER [None]
  - BIPOLAR DISORDER [None]
  - SPINAL FRACTURE [None]
  - ABASIA [None]
  - HYPOACUSIS [None]
